FAERS Safety Report 24409244 (Version 4)
Quarter: 2025Q3

REPORT INFORMATION
  Report Type: Spontaneous
  Country: CA (occurrence: CA)
  Receive Date: 20241008
  Receipt Date: 20250925
  Transmission Date: 20251021
  Serious: Yes (Life-Threatening, Other)
  Sender: AUROBINDO
  Company Number: CA-AUROBINDO-AUR-APL-2024-047932

PATIENT
  Age: 14 Year
  Sex: Male
  Weight: 41 kg

DRUGS (41)
  1. FAMOTIDINE [Suspect]
     Active Substance: FAMOTIDINE
     Indication: Product used for unknown indication
     Route: 065
  2. GABAPENTIN [Suspect]
     Active Substance: GABAPENTIN
     Indication: Product used for unknown indication
     Route: 065
  3. HYDROCORTISONE [Suspect]
     Active Substance: HYDROCORTISONE
     Indication: Product used for unknown indication
     Route: 030
  4. ONDANSETRON [Suspect]
     Active Substance: ONDANSETRON
     Indication: Product used for unknown indication
     Route: 065
  5. ROCURONIUM [Suspect]
     Active Substance: ROCURONIUM BROMIDE
     Indication: Product used for unknown indication
     Route: 042
  6. ROCURONIUM [Suspect]
     Active Substance: ROCURONIUM BROMIDE
     Route: 065
  7. TRANEXAMIC ACID [Suspect]
     Active Substance: TRANEXAMIC ACID
     Indication: Product used for unknown indication
     Route: 065
  8. TRANEXAMIC ACID [Suspect]
     Active Substance: TRANEXAMIC ACID
     Route: 042
  9. VANCOMYCIN HYDROCHLORIDE [Suspect]
     Active Substance: VANCOMYCIN HYDROCHLORIDE
     Indication: Product used for unknown indication
     Route: 042
  10. VANCOMYCIN HYDROCHLORIDE [Suspect]
     Active Substance: VANCOMYCIN HYDROCHLORIDE
     Route: 065
  11. ACETAMINOPHEN [Suspect]
     Active Substance: ACETAMINOPHEN
     Indication: Product used for unknown indication
     Route: 065
  12. ALBUREX [Suspect]
     Active Substance: ALBUMIN HUMAN
     Indication: Product used for unknown indication
     Route: 065
  13. ALBUREX [Suspect]
     Active Substance: ALBUMIN HUMAN
     Route: 042
  14. ALBUREX [Suspect]
     Active Substance: ALBUMIN HUMAN
     Route: 042
  15. ALBUREX [Suspect]
     Active Substance: ALBUMIN HUMAN
     Route: 042
  16. ALBUREX [Suspect]
     Active Substance: ALBUMIN HUMAN
     Indication: Product used for unknown indication
     Route: 042
  17. BENADRYL [Suspect]
     Active Substance: DIPHENHYDRAMINE HYDROCHLORIDE
     Indication: Product used for unknown indication
     Route: 065
  18. BUDESONIDE [Suspect]
     Active Substance: BUDESONIDE
     Indication: Product used for unknown indication
     Route: 065
  19. CALCIUM CHLORIDE [Suspect]
     Active Substance: CALCIUM CHLORIDE
     Indication: Product used for unknown indication
     Route: 042
  20. CEFAZOLIN SODIUM [Suspect]
     Active Substance: CEFAZOLIN SODIUM
     Indication: Product used for unknown indication
     Route: 042
  21. CHLORHEXIDINE GLUCONATE [Suspect]
     Active Substance: CHLORHEXIDINE GLUCONATE
     Indication: Product used for unknown indication
     Route: 065
  22. DDAVP [Suspect]
     Active Substance: DESMOPRESSIN ACETATE
     Indication: Product used for unknown indication
     Route: 065
  23. DDAVP [Suspect]
     Active Substance: DESMOPRESSIN ACETATE
     Route: 042
  24. DECADRON [Suspect]
     Active Substance: DEXAMETHASONE
     Indication: Product used for unknown indication
     Route: 065
  25. HUMAN COAGULATION FACTOR VIII/VON WILLEBRAND FACTOR COMPLEX [Suspect]
     Active Substance: HUMAN COAGULATION FACTOR VIII/VON WILLEBRAND FACTOR COMPLEX
     Indication: Product used for unknown indication
     Route: 065
  26. DEVICE\GELATIN [Suspect]
     Active Substance: DEVICE\GELATIN
     Indication: Tissue sealing
     Route: 065
  27. DEVICE\GELATIN [Suspect]
     Active Substance: DEVICE\GELATIN
     Route: 065
  28. HYDROMORPHONE [Suspect]
     Active Substance: HYDROMORPHONE
     Indication: Product used for unknown indication
     Route: 065
  29. KETAMINE [Suspect]
     Active Substance: KETAMINE
     Indication: Scoliosis surgery
     Dosage: 0.3 MILLIGRAM/KILOGRAM, EVERY HOUR
     Route: 065
  30. MORPHINE [Suspect]
     Active Substance: MORPHINE
     Indication: Product used for unknown indication
     Route: 008
  31. NAPROSYN [Suspect]
     Active Substance: NAPROXEN
     Indication: Product used for unknown indication
     Route: 065
  32. NOREPINEPHRINE BITARTRATE [Suspect]
     Active Substance: NOREPINEPHRINE BITARTRATE
     Indication: Product used for unknown indication
     Route: 065
  33. PROPOFOL [Suspect]
     Active Substance: PROPOFOL
     Indication: Scoliosis surgery
     Route: 065
  34. PROPOFOL [Suspect]
     Active Substance: PROPOFOL
     Route: 065
  35. SOLU-CORTEF [Suspect]
     Active Substance: HYDROCORTISONE SODIUM SUCCINATE
     Indication: Product used for unknown indication
     Route: 030
  36. TISSEEL [Suspect]
     Active Substance: FIBRINOGEN HUMAN\HUMAN THROMBIN
     Indication: Tissue sealing
     Route: 061
  37. TISSEEL [Suspect]
     Active Substance: FIBRINOGEN HUMAN\HUMAN THROMBIN
     Route: 065
  38. TRANDATE [Suspect]
     Active Substance: LABETALOL HYDROCHLORIDE
     Indication: Product used for unknown indication
     Route: 065
  39. VENTOLIN [Suspect]
     Active Substance: ALBUTEROL SULFATE
     Indication: Product used for unknown indication
     Route: 065
  40. SUFENTANIL CITRATE [Suspect]
     Active Substance: SUFENTANIL CITRATE
     Indication: Product used for unknown indication
     Route: 065
  41. VON WILLEBRAND FACTOR HUMAN [Suspect]
     Active Substance: VON WILLEBRAND FACTOR HUMAN
     Indication: Product used for unknown indication
     Route: 065

REACTIONS (23)
  - Blood pressure increased [Recovered/Resolved]
  - Adverse reaction [Recovered/Resolved]
  - Anaphylactic reaction [Recovered/Resolved]
  - Angiopathy [Recovered/Resolved]
  - Back pain [Recovered/Resolved]
  - Emphysema [Recovered/Resolved]
  - Epistaxis [Recovered/Resolved]
  - Face oedema [Recovered/Resolved]
  - Flatulence [Recovered/Resolved]
  - Haemorrhage [Recovered/Resolved]
  - Haemothorax [Recovered/Resolved]
  - Hypersensitivity [Recovered/Resolved]
  - Hypotension [Recovered/Resolved]
  - Hypovolaemia [Recovered/Resolved]
  - Inspiratory capacity decreased [Recovered/Resolved]
  - Mechanical ventilation complication [Recovered/Resolved]
  - Pleural effusion [Recovered/Resolved]
  - Pneumothorax [Recovered/Resolved]
  - Shock haemorrhagic [Recovered/Resolved]
  - Tachycardia [Recovered/Resolved]
  - Urticaria [Recovered/Resolved]
  - Anaphylactic shock [Recovered/Resolved]
  - Shock [Recovered/Resolved]
